FAERS Safety Report 10678142 (Version 1)
Quarter: 2014Q4

REPORT INFORMATION
  Report Type: Spontaneous
  Country: PT (occurrence: None)
  Receive Date: 20141223
  Receipt Date: 20141223
  Transmission Date: 20150529
  Serious: Yes (Other)
  Sender: FDA-Public Use
  Company Number: 2014HINLIT1060

PATIENT
  Age: 47 Year
  Sex: Female

DRUGS (7)
  1. ABACAVIR [Suspect]
     Active Substance: ABACAVIR
     Indication: HIV INFECTION
  2. TENOFOVIR [Suspect]
     Active Substance: TENOFOVIR
     Indication: HIV INFECTION
  3. DARUNAVIR [Suspect]
     Active Substance: DARUNAVIR
     Indication: HIV INFECTION
  4. RITONAVIR. [Suspect]
     Active Substance: RITONAVIR
     Indication: HIV INFECTION
  5. EMTRICITABINE [Suspect]
     Active Substance: EMTRICITABINE
     Indication: HIV INFECTION
  6. NEVIRAPINE. [Suspect]
     Active Substance: NEVIRAPINE
     Indication: HIV INFECTION
  7. LAMIVUDINE. [Suspect]
     Active Substance: LAMIVUDINE
     Indication: HIV INFECTION

REACTIONS (4)
  - Drug hypersensitivity [None]
  - Skin test positive [None]
  - Eyelid oedema [None]
  - Rash pruritic [None]
